FAERS Safety Report 10720952 (Version 3)
Quarter: 2015Q3

REPORT INFORMATION
  Report Type: Spontaneous
  Country: US (occurrence: US)
  Receive Date: 20150119
  Receipt Date: 20150715
  Transmission Date: 20151125
  Serious: Yes (Other)
  Sender: FDA-Public Use
  Company Number: US-PFIZER INC-2015019476

PATIENT
  Age: 43 Year
  Sex: Female
  Weight: 56 kg

DRUGS (5)
  1. PRISTIQ EXTENDED RELEASE [Suspect]
     Active Substance: DESVENLAFAXINE SUCCINATE
     Dosage: 100 MG, UNK
  2. PRISTIQ EXTENDED RELEASE [Suspect]
     Active Substance: DESVENLAFAXINE SUCCINATE
     Dosage: UNK
  3. XELJANZ [Concomitant]
     Active Substance: TOFACITINIB CITRATE
     Dosage: 70 MG, 1X/DAY
  4. PRISTIQ EXTENDED RELEASE [Suspect]
     Active Substance: DESVENLAFAXINE SUCCINATE
     Dosage: 100 MG, UNK
  5. PRISTIQ EXTENDED RELEASE [Suspect]
     Active Substance: DESVENLAFAXINE SUCCINATE
     Indication: DEPRESSION
     Dosage: 50 MG, UNK

REACTIONS (16)
  - Cold sweat [Unknown]
  - Abdominal pain upper [Unknown]
  - Fatigue [Unknown]
  - Depression [Unknown]
  - Dyspnoea [Unknown]
  - Restless legs syndrome [Unknown]
  - Panic attack [Unknown]
  - Malaise [Unknown]
  - Insomnia [Unknown]
  - Palpitations [Unknown]
  - Anxiety [Unknown]
  - Serotonin syndrome [Unknown]
  - Vision blurred [Unknown]
  - Dizziness [Unknown]
  - Tachycardia [Unknown]
  - Tremor [Unknown]
